FAERS Safety Report 5608142-X (Version None)
Quarter: 2008Q1

REPORT INFORMATION
  Report Type: 
  Country: None (occurrence: None)
  Receive Date: 20080130
  Receipt Date: 20080124
  Transmission Date: 20080703
  Serious: Yes (Hospitalization)
  Sender: FDA-Public Use
  Company Number: US-ASTRAZENECA-2008UW01891

PATIENT
  Age: 66 Year
  Sex: Female

DRUGS (2)
  1. SEROQUEL [Suspect]
     Dosage: STARTER PACK ( 50, 100, 200, 300) MG
     Route: 048
     Dates: start: 20080118
  2. DIABETC  AND THYROID MEDICATIONS [Concomitant]

REACTIONS (4)
  - CEREBROVASCULAR ACCIDENT [None]
  - DIZZINESS [None]
  - DRY MOUTH [None]
  - DYSARTHRIA [None]
